FAERS Safety Report 5858763-4 (Version None)
Quarter: 2008Q3

REPORT INFORMATION
  Report Type: 
  Country: None (occurrence: None)
  Receive Date: 20080818
  Receipt Date: 20080422
  Transmission Date: 20090109
  Serious: No
  Sender: FDA-Public Use
  Company Number: WAES 0804USA02491

PATIENT
  Age: 46 Year
  Sex: Female
  Weight: 122.9248 kg

DRUGS (6)
  1. JANUVIA [Suspect]
     Indication: TYPE 2 DIABETES MELLITUS
     Dosage: 100 MG/DAILY/PO
     Route: 048
  2. ALLEGRA [Concomitant]
  3. GLUCOPHAGE [Concomitant]
  4. NAPROSYN [Concomitant]
  5. WELLBUTRIN SR [Concomitant]
  6. LISINOPRIL [Concomitant]

REACTIONS (2)
  - NAUSEA [None]
  - VOMITING [None]
